FAERS Safety Report 5261299-5 (Version None)
Quarter: 2007Q1

REPORT INFORMATION
  Report Type: 
  Country: None (occurrence: None)
  Receive Date: 20070306
  Receipt Date: 20070219
  Transmission Date: 20070707
  Serious: Yes (Death, Hospitalization, Other)
  Sender: FDA-Public Use
  Company Number: 2006MP000700

PATIENT
  Age: 66 Year
  Sex: Female

DRUGS (4)
  1. GLIADEL [Suspect]
     Indication: GLIOBLASTOMA MULTIFORME
     Dosage: 61.6 MG/X1; ICER
     Dates: start: 20050630
  2. DEXAMETHASONE [Concomitant]
  3. PANTOPRAZOLE SODIUM [Concomitant]
  4. DEPAKENE [Concomitant]

REACTIONS (3)
  - COMA [None]
  - HYDROCEPHALUS [None]
  - POST PROCEDURAL COMPLICATION [None]
